FAERS Safety Report 6097492-1 (Version None)
Quarter: 2009Q1

REPORT INFORMATION
  Report Type: 
  Country: None (occurrence: None)
  Receive Date: 20090227
  Receipt Date: 20080903
  Transmission Date: 20090719
  Serious: No
  Sender: FDA-Public Use
  Company Number: A0741811A

PATIENT
  Age: 36 Year
  Sex: Female

DRUGS (1)
  1. IMITREX [Suspect]
     Indication: MIGRAINE
     Dosage: 6MG PER DAY
     Route: 058
     Dates: start: 20080701, end: 20080701

REACTIONS (3)
  - INJECTION SITE SWELLING [None]
  - RASH PAPULAR [None]
  - SKIN INDURATION [None]
